FAERS Safety Report 7331063-1 (Version None)
Quarter: 2011Q1

REPORT INFORMATION
  Report Type: 
  Country: None (occurrence: None)
  Receive Date: 20110304
  Receipt Date: 20110222
  Transmission Date: 20110831
  Serious: Yes (Other)
  Sender: FDA-Public Use
  Company Number: IT-JNJFOC-20060203584

PATIENT
  Age: 45 Year
  Sex: Female

DRUGS (2)
  1. AZATHIOPRINE SODIUM [Concomitant]
     Indication: CROHN'S DISEASE
  2. INFLIXIMAB [Suspect]
     Indication: CROHN'S DISEASE
     Dosage: 4 INFUSIONS- MAINTENANCE
     Route: 042

REACTIONS (1)
  - LEUKAEMIA [None]
